FAERS Safety Report 14750477 (Version 4)
Quarter: 2019Q1

REPORT INFORMATION
  Report Type: Report from Study
  Country: US (occurrence: US)
  Receive Date: 20180412
  Receipt Date: 20190322
  Transmission Date: 20190417
  Serious: Yes (Death, Other)
  Sender: FDA-Public Use
  Company Number: US-ROCHE-2100450

PATIENT

DRUGS (4)
  1. CAPECITABINE. [Suspect]
     Active Substance: CAPECITABINE
     Indication: OESOPHAGEAL ADENOCARCINOMA
     Dosage: ON DAY 1 AND 14
     Route: 048
  2. RAMUCIRUMAB [Suspect]
     Active Substance: RAMUCIRUMAB
     Indication: OESOPHAGEAL ADENOCARCINOMA
     Dosage: ON DAY 1 AND DAY 8
     Route: 042
  3. CISPLATIN. [Suspect]
     Active Substance: CISPLATIN
     Indication: OESOPHAGEAL ADENOCARCINOMA
     Dosage: ON DAY 1 FOR UP TO SIX CYCLES
     Route: 042
  4. 5-FU [Suspect]
     Active Substance: FLUOROURACIL
     Indication: OESOPHAGEAL ADENOCARCINOMA
     Dosage: ON DAY 1-5
     Route: 042

REACTIONS (34)
  - Acute kidney injury [Fatal]
  - Cerebrovascular accident [Fatal]
  - Cardiac failure congestive [Unknown]
  - Impaired healing [Unknown]
  - Septic shock [Fatal]
  - Sudden death [Fatal]
  - Gastrointestinal haemorrhage [Unknown]
  - Thrombocytopenia [Unknown]
  - Febrile neutropenia [Unknown]
  - Diarrhoea [Unknown]
  - Embolism venous [Unknown]
  - Neutropenia [Unknown]
  - Fistula [Unknown]
  - Abdominal pain [Unknown]
  - Proteinuria [Unknown]
  - Nausea [Unknown]
  - Hypertension [Unknown]
  - Pulmonary haemorrhage [Unknown]
  - Pneumothorax [Fatal]
  - Sepsis [Fatal]
  - Decreased appetite [Unknown]
  - Vomiting [Unknown]
  - Cardiac arrest [Fatal]
  - Gastric haemorrhage [Fatal]
  - Multiple organ dysfunction syndrome [Fatal]
  - Pulmonary embolism [Fatal]
  - Embolism arterial [Unknown]
  - Gastrointestinal perforation [Unknown]
  - Leukopenia [Unknown]
  - Peritonitis [Fatal]
  - Haemorrhage [Unknown]
  - Anaemia [Unknown]
  - Fatigue [Unknown]
  - Palmar-plantar erythrodysaesthesia syndrome [Unknown]
